FAERS Safety Report 4995272-9 (Version None)
Quarter: 2006Q2

REPORT INFORMATION
  Report Type: 
  Country: None (occurrence: None)
  Receive Date: 20060508
  Receipt Date: 20051219
  Transmission Date: 20061013
  Serious: Yes (Death, Hospitalization, Disabling)
  Sender: FDA-Public Use
  Company Number: US-MERCK-0512USA03185

PATIENT
  Age: 69 Year
  Sex: Female

DRUGS (9)
  1. VIOXX [Suspect]
     Indication: ARTHRITIS
     Route: 048
     Dates: start: 20010601, end: 20030101
  2. VIOXX [Suspect]
     Route: 048
     Dates: start: 20010601, end: 20030101
  3. HYZAAR [Concomitant]
     Route: 065
  4. TRAZODONE HYDROCHLORIDE [Concomitant]
     Route: 065
  5. CARBIDOPA [Concomitant]
     Route: 065
  6. SYNTHROID [Concomitant]
     Route: 065
  7. SEREVENT [Concomitant]
     Route: 065
  8. GLUCOTROL [Concomitant]
     Route: 065
  9. LUMIGAN [Concomitant]
     Route: 065

REACTIONS (18)
  - ARTHROPATHY [None]
  - DEATH [None]
  - DEEP VEIN THROMBOSIS [None]
  - DEPRESSION [None]
  - DYSPNOEA [None]
  - DYSPNOEA AT REST [None]
  - FEELING ABNORMAL [None]
  - GLAUCOMA [None]
  - GOITRE [None]
  - MALAISE [None]
  - OEDEMA PERIPHERAL [None]
  - PALPITATIONS [None]
  - POST-TRAUMATIC STRESS DISORDER [None]
  - PULMONARY EMBOLISM [None]
  - RHEUMATOID ARTHRITIS [None]
  - TACHYCARDIA [None]
  - THROMBOSIS [None]
  - THYROID DISORDER [None]
